FAERS Safety Report 14494640 (Version 1)
Quarter: 2018Q1

REPORT INFORMATION
  Report Type: Spontaneous
  Country: DE (occurrence: DE)
  Receive Date: 20180206
  Receipt Date: 20180206
  Transmission Date: 20180509
  Serious: Yes (Hospitalization)
  Sender: FDA-Public Use
  Company Number: DE-TEVA-2018-DE-851824

PATIENT
  Age: 91 Year
  Sex: Male

DRUGS (4)
  1. MYLEPSINUM [Suspect]
     Active Substance: PRIMIDONE
     Indication: EPILEPSY
     Dosage: FOR 40-50 YEARS
     Route: 048
  2. MAGNESIUM [Concomitant]
     Active Substance: MAGNESIUM
  3. TEBONIN [Concomitant]
     Active Substance: GINKGO
  4. CRATAEGUTT [Concomitant]

REACTIONS (4)
  - Loss of consciousness [Recovered/Resolved]
  - Overdose [Unknown]
  - Confusional state [Unknown]
  - Withdrawal syndrome [Unknown]

NARRATIVE: CASE EVENT DATE: 201801
